FAERS Safety Report 20064578 (Version 1)
Quarter: 2021Q4

REPORT INFORMATION
  Report Type: Spontaneous
  Country: US (occurrence: US)
  Receive Date: 20211112
  Receipt Date: 20211112
  Transmission Date: 20220303
  Serious: Yes (Life-Threatening, Hospitalization, Other)
  Sender: FDA-Public Use
  Company Number: US-LUNDBECK-DKLU3040374

PATIENT
  Sex: Female

DRUGS (1)
  1. CITALOPRAM HYDROBROMIDE [Suspect]
     Active Substance: CITALOPRAM HYDROBROMIDE
     Indication: Depression
     Dosage: OVERDOSE: 80MG DAILY
     Route: 065

REACTIONS (5)
  - Long QT syndrome congenital [Recovered/Resolved]
  - Syncope [Recovered/Resolved]
  - Torsade de pointes [Recovered/Resolved]
  - Inappropriate schedule of product administration [Unknown]
  - Prescribed overdose [Unknown]
